FAERS Safety Report 5043062-3 (Version None)
Quarter: 2006Q2

REPORT INFORMATION
  Report Type: 
  Country: None (occurrence: None)
  Receive Date: 20060628
  Receipt Date: 20060614
  Transmission Date: 20061013
  Serious: Yes (Other)
  Sender: FDA-Public Use
  Company Number: 2006PV014644

PATIENT
  Age: 67 Year
  Sex: Female

DRUGS (11)
  1. BYETTA [Suspect]
     Indication: DIABETES MELLITUS NON-INSULIN-DEPENDENT
     Dosage: SEE IMAGE
     Route: 058
     Dates: start: 20051101, end: 20051201
  2. BYETTA [Suspect]
     Indication: DIABETES MELLITUS NON-INSULIN-DEPENDENT
     Dosage: SEE IMAGE
     Route: 058
     Dates: start: 20051201, end: 20051201
  3. BYETTA [Suspect]
     Indication: DIABETES MELLITUS NON-INSULIN-DEPENDENT
     Dosage: SEE IMAGE
     Route: 058
     Dates: start: 20051201, end: 20060401
  4. BYETTA [Suspect]
     Indication: DIABETES MELLITUS NON-INSULIN-DEPENDENT
     Dosage: SEE IMAGE
     Route: 058
     Dates: start: 20060401, end: 20060531
  5. AMARYL [Concomitant]
  6. AVANDIA [Concomitant]
  7. ALTACE [Concomitant]
  8. ZOCOR [Concomitant]
  9. ALLEGRA [Concomitant]
  10. SYNTHROID [Concomitant]
  11. ZYRTEC [Concomitant]

REACTIONS (9)
  - DIZZINESS [None]
  - EXCORIATION [None]
  - FALL [None]
  - LOSS OF CONSCIOUSNESS [None]
  - MALAISE [None]
  - NAUSEA [None]
  - REFUSAL OF TREATMENT BY PATIENT [None]
  - RHINITIS ALLERGIC [None]
  - SYNCOPE [None]
